FAERS Safety Report 19533235 (Version 4)
Quarter: 2021Q4

REPORT INFORMATION
  Report Type: Spontaneous
  Country: US (occurrence: US)
  Receive Date: 20210713
  Receipt Date: 20211129
  Transmission Date: 20220303
  Serious: Yes (Disabling)
  Sender: FDA-Public Use
  Company Number: US-AMERICAN REGENT INC-2021001798

PATIENT
  Age: 46 Year
  Sex: Female
  Weight: 60.771 kg

DRUGS (13)
  1. FERRIC CARBOXYMALTOSE [Suspect]
     Active Substance: FERRIC CARBOXYMALTOSE
     Indication: Blood iron decreased
     Dosage: 750 MILLIGRAM IN SODIUM CHLORIDE 0.9% 250 ML
     Route: 042
     Dates: start: 20180820, end: 20180820
  2. FERRIC CARBOXYMALTOSE [Suspect]
     Active Substance: FERRIC CARBOXYMALTOSE
     Indication: Iron deficiency anaemia
     Dosage: 750 MILLIGRAM IN SODIUM CHLORIDE 0.9% 250 ML
     Route: 042
     Dates: start: 20180827, end: 20180827
  3. FERRIC CARBOXYMALTOSE [Suspect]
     Active Substance: FERRIC CARBOXYMALTOSE
     Dosage: 750 MILLIGRAM IN SODIUM CHLORIDE 0.9% 250 ML
     Route: 042
     Dates: start: 20181010, end: 20181010
  4. FERRIC CARBOXYMALTOSE [Suspect]
     Active Substance: FERRIC CARBOXYMALTOSE
     Dosage: 750 MILLIGRAM IN SODIUM CHLORIDE 0.9% 265 ML
     Route: 042
     Dates: start: 20190708, end: 20190708
  5. FERRIC CARBOXYMALTOSE [Suspect]
     Active Substance: FERRIC CARBOXYMALTOSE
     Dosage: 750 MILLIGRAM IN SODIUM CHLORIDE 0.9% 265 ML
     Route: 042
     Dates: start: 20190716, end: 20190716
  6. FERRIC CARBOXYMALTOSE [Suspect]
     Active Substance: FERRIC CARBOXYMALTOSE
     Dosage: 750 MILLIGRAM IN SODIUM CHLORIDE 0.9% 265 ML
     Route: 042
     Dates: start: 20191007, end: 20191007
  7. FERRIC CARBOXYMALTOSE [Suspect]
     Active Substance: FERRIC CARBOXYMALTOSE
     Dosage: 750 MILLIGRAM IN SODIUM CHLORIDE 0.9% 265 ML
     Route: 042
     Dates: start: 20200630, end: 20200630
  8. FERRIC CARBOXYMALTOSE [Suspect]
     Active Substance: FERRIC CARBOXYMALTOSE
     Dosage: 750 MILLIGRAM IN SODIUM CHLORIDE 0.9% 265 ML
     Route: 042
     Dates: start: 20200707, end: 20200707
  9. FERRIC CARBOXYMALTOSE [Suspect]
     Active Substance: FERRIC CARBOXYMALTOSE
     Dosage: 750 MILLIGRAM IN SODIUM CHLORIDE 0.9% 265 ML
     Route: 042
     Dates: start: 20200909, end: 20200909
  10. FERRIC CARBOXYMALTOSE [Suspect]
     Active Substance: FERRIC CARBOXYMALTOSE
     Dosage: 750 MILLIGRAM IN SODIUM CHLORIDE 0.9% 265 ML
     Route: 042
     Dates: start: 20200918, end: 20200918
  11. VALIUM [Concomitant]
     Active Substance: DIAZEPAM
     Indication: Generalised anxiety disorder
     Dosage: 10 MILLIGRAM, 2 (TWO) TIMES DAILY (EVERY 12 HOURS), AS NEEDED
     Route: 048
  12. ROBAXIN [Concomitant]
     Active Substance: METHOCARBAMOL
     Indication: Temporomandibular joint syndrome
     Dosage: 2 TABLETS (1500 MILLIGRAM), 3 (THREE) TIMES DAILY
     Route: 048
     Dates: start: 20180807, end: 20190401
  13. TRAMADOL [Concomitant]
     Active Substance: TRAMADOL
     Indication: Temporomandibular joint syndrome
     Dosage: ONE (1) EVERY SIX HOURS, PRN
     Route: 048
     Dates: start: 20180802, end: 20200804

REACTIONS (10)
  - Myalgia [Recovered/Resolved]
  - Pain in extremity [Recovering/Resolving]
  - Hypoaesthesia [Not Recovered/Not Resolved]
  - Pain [Not Recovered/Not Resolved]
  - Hypophosphataemia [Recovered/Resolved]
  - Arthralgia [Recovered/Resolved]
  - Paraesthesia [Not Recovered/Not Resolved]
  - Emotional distress [Not Recovered/Not Resolved]
  - Anhedonia [Not Recovered/Not Resolved]
  - Product quality issue [Unknown]

NARRATIVE: CASE EVENT DATE: 20190501
